FAERS Safety Report 9852610 (Version 1)
Quarter: 2014Q1

REPORT INFORMATION
  Report Type: Spontaneous
  Country: US (occurrence: KR)
  Receive Date: 20140129
  Receipt Date: 20140129
  Transmission Date: 20141002
  Serious: Yes (Hospitalization)
  Sender: FDA-Public Use
  Company Number: KR-FRI-1000053187

PATIENT
  Age: 80 Year
  Sex: Male
  Weight: 59 kg

DRUGS (14)
  1. ROFLUMILAST [Suspect]
     Indication: CHRONIC OBSTRUCTIVE PULMONARY DISEASE
     Dosage: 500 MCG
     Route: 048
     Dates: start: 20131204
  2. SERETIDE [Concomitant]
     Dates: start: 20130805
  3. COUGH SYRUP [Concomitant]
     Dates: start: 20130930
  4. PRIMALAN [Concomitant]
     Dates: start: 20130930
  5. IBUPROFEN [Concomitant]
     Dates: start: 20130805
  6. ASTEROL [Concomitant]
     Dates: start: 20131204
  7. ASPIRIN PROTECT [Concomitant]
     Dates: start: 20050404
  8. LIPITOR [Concomitant]
     Dates: start: 20050613
  9. HERBEN [Concomitant]
     Dates: start: 20070125
  10. SULPRIDE [Concomitant]
     Dates: start: 20121112
  11. PANTOLOC [Concomitant]
     Dates: start: 20080103
  12. NITROGLYCERINE [Concomitant]
     Dates: start: 20040428
  13. ALMAGATE [Concomitant]
     Dates: start: 20130722
  14. TYLENOL ER [Concomitant]
     Dates: start: 20130520

REACTIONS (1)
  - Dyspnoea [Recovered/Resolved]
